FAERS Safety Report 7570995-6 (Version None)
Quarter: 2011Q2

REPORT INFORMATION
  Report Type: 
  Country: None (occurrence: None)
  Receive Date: 20110624
  Receipt Date: 20110609
  Transmission Date: 20111010
  Serious: Yes (Other)
  Sender: FDA-Public Use
  Company Number: CA-ROCHE-765877

PATIENT
  Sex: Female

DRUGS (4)
  1. FLUOROURACIL [Concomitant]
  2. BEVACIZUMAB [Suspect]
     Indication: GASTROINTESTINAL CARCINOMA
     Route: 042
     Dates: start: 20091022, end: 20110303
  3. LEUCOVORIN CALCIUM [Concomitant]
  4. IRINOTECAN HYDROCHLORIDE [Concomitant]

REACTIONS (3)
  - RASH [None]
  - NEOPLASM PROGRESSION [None]
  - HYPOTENSION [None]
